FAERS Safety Report 5098336-7 (Version None)
Quarter: 2006Q3

REPORT INFORMATION
  Report Type: 
  Country: None (occurrence: None)
  Receive Date: 20060906
  Receipt Date: 20060830
  Transmission Date: 20061208
  Serious: Yes (Hospitalization)
  Sender: FDA-Public Use
  Company Number: US-JNJFOC-20060806919

PATIENT
  Sex: Female
  Weight: 146.97 kg

DRUGS (3)
  1. REMICADE [Suspect]
     Dosage: 5 VIALS
     Route: 042
  2. REMICADE [Suspect]
     Indication: PSORIATIC ARTHROPATHY
     Dosage: 5 VIALS
     Route: 042
  3. ANALGESICS [Concomitant]
     Indication: PSORIATIC ARTHROPATHY

REACTIONS (3)
  - JOINT LOCK [None]
  - PAIN [None]
  - PYREXIA [None]
